FAERS Safety Report 13622623 (Version 2)
Quarter: 2017Q3

REPORT INFORMATION
  Report Type: Report from Study
  Country: US (occurrence: US)
  Receive Date: 20170607
  Receipt Date: 20170718
  Transmission Date: 20171127
  Serious: Yes (Disabling)
  Sender: FDA-Public Use
  Company Number: PHEH2017US016880

PATIENT
  Sex: Female

DRUGS (2)
  1. COREG [Concomitant]
     Active Substance: CARVEDILOL
     Indication: PRODUCT USED FOR UNKNOWN INDICATION
     Dosage: UNK
     Route: 065
  2. ENTRESTO [Suspect]
     Active Substance: SACUBITRIL\VALSARTAN
     Indication: PRODUCT USED FOR UNKNOWN INDICATION
     Dosage: 50 MG (24 MG SACUBITRIL AND 26 MG VALSARTAN), BID
     Route: 048

REACTIONS (4)
  - Decreased activity [Unknown]
  - Asthenia [Unknown]
  - Malaise [Unknown]
  - Blood pressure decreased [Not Recovered/Not Resolved]
